FAERS Safety Report 20991561 (Version 3)
Quarter: 2022Q4

REPORT INFORMATION
  Report Type: Report from Study
  Country: GB (occurrence: None)
  Receive Date: 20220622
  Receipt Date: 20221223
  Transmission Date: 20230113
  Serious: Yes (Other)
  Sender: FDA-Public Use
  Company Number: GB-ROCHE-3117950

PATIENT
  Age: 59 Year
  Sex: Male
  Weight: 71.8 kg

DRUGS (8)
  1. ATEZOLIZUMAB [Suspect]
     Active Substance: ATEZOLIZUMAB
     Indication: Transitional cell carcinoma
     Dosage: DOSE LAST STUDY DRUG ADMIN PRIOR AE: 1200 MG?START DATE OF MOST RECENT DOSE OF STUDY DRUG PRIOR TO A
     Route: 041
     Dates: start: 20200729
  2. TIRAGOLUMAB [Suspect]
     Active Substance: TIRAGOLUMAB
     Indication: Transitional cell carcinoma
     Dosage: DOSE LAST STUDY DRUG ADMIN PRIOR AE: 600 MG?START DATE OF MOST RECENT DOSE OF STUDY DRUG PRIOR TO AE
     Route: 042
     Dates: start: 20200729
  3. DOXAZOSIN MESYLATE [Concomitant]
     Active Substance: DOXAZOSIN MESYLATE
     Indication: Hypertension
     Route: 048
     Dates: start: 20201112
  4. LEVOTHYROXINE [Concomitant]
     Active Substance: LEVOTHYROXINE
     Indication: Hypothyroidism
     Route: 048
     Dates: start: 20210521
  5. ACETAMINOPHEN [Concomitant]
     Active Substance: ACETAMINOPHEN
     Indication: Abdominal pain
     Dates: start: 20210712
  6. METOCLOPRAMIDE [Concomitant]
     Active Substance: METOCLOPRAMIDE
     Indication: Nausea
     Dates: start: 20210902
  7. AMOXICILLIN [Concomitant]
     Active Substance: AMOXICILLIN
     Indication: Lower respiratory tract infection
     Route: 048
     Dates: start: 20220218, end: 20220222
  8. HYDROCORTISONE [Concomitant]
     Active Substance: HYDROCORTISONE
     Indication: Adrenal insufficiency
     Route: 048
     Dates: start: 20211028

REACTIONS (2)
  - Visual acuity reduced [Not Recovered/Not Resolved]
  - Vision blurred [Not Recovered/Not Resolved]

NARRATIVE: CASE EVENT DATE: 20220305
